FAERS Safety Report 18123089 (Version 1)
Quarter: 2020Q3

REPORT INFORMATION
  Report Type: Spontaneous
  Country: FR (occurrence: FR)
  Receive Date: 20200807
  Receipt Date: 20200807
  Transmission Date: 20201103
  Serious: Yes (Hospitalization)
  Sender: FDA-Public Use
  Company Number: FR-CADILA HEALTHCARE LIMITED-FR-ZYDUS-024537

PATIENT

DRUGS (1)
  1. ATENOLOL. [Suspect]
     Active Substance: ATENOLOL
     Indication: POISONING DELIBERATE
     Dosage: 3000 MILLIGRAM
     Route: 048
     Dates: start: 20180523, end: 20180523

REACTIONS (4)
  - Heart rate decreased [Recovered/Resolved]
  - Aggression [Recovered/Resolved]
  - Hypothermia [Recovered/Resolved]
  - Agitation [Recovered/Resolved]

NARRATIVE: CASE EVENT DATE: 20180523
